FAERS Safety Report 12103074 (Version 1)
Quarter: 2016Q1

REPORT INFORMATION
  Report Type: Spontaneous
  Country: US (occurrence: US)
  Receive Date: 20160222
  Receipt Date: 20160222
  Transmission Date: 20160526
  Serious: Yes (Hospitalization, Other)
  Sender: FDA-Public Use
  Company Number: US-MYLANLABS-2016M1006269

PATIENT

DRUGS (1)
  1. PHENYTOIN. [Suspect]
     Active Substance: PHENYTOIN
     Indication: PARTIAL SEIZURES
     Route: 065

REACTIONS (3)
  - Toxic epidermal necrolysis [Unknown]
  - Stevens-Johnson syndrome [Unknown]
  - Obliterative bronchiolitis [Recovered/Resolved]
